FAERS Safety Report 4508361-X (Version None)
Quarter: 2004Q4

REPORT INFORMATION
  Report Type: 
  Country: None (occurrence: None)
  Receive Date: 20041123
  Receipt Date: 20040119
  Transmission Date: 20050328
  Serious: No
  Sender: FDA-Public Use
  Company Number: US-GLAXOSMITHKLINE-A0493952A

PATIENT
  Age: 63 Year
  Sex: Female

DRUGS (10)
  1. WELLBUTRIN [Suspect]
     Indication: DEPRESSION
     Dosage: 150MG TWICE PER DAY
     Route: 048
     Dates: start: 20031101
  2. LISINOPRIL [Concomitant]
  3. DICLOFENAC [Concomitant]
  4. SYNTHROID [Concomitant]
  5. HYDROCHLOROTHIAZIDE [Concomitant]
  6. XANAX [Concomitant]
  7. MAGNESIUM OXIDE [Concomitant]
  8. DHEA [Concomitant]
  9. MULTIVITAMIN [Concomitant]
  10. GLUCOSAMINE [Concomitant]

REACTIONS (4)
  - DRUG INEFFECTIVE [None]
  - DYSGEUSIA [None]
  - HYPERHIDROSIS [None]
  - SKIN ODOUR ABNORMAL [None]
